FAERS Safety Report 7051714-9 (Version None)
Quarter: 2010Q4

REPORT INFORMATION
  Report Type: 
  Country: None (occurrence: None)
  Receive Date: 20101012
  Receipt Date: 20101006
  Transmission Date: 20110411
  Serious: Yes (Other)
  Sender: FDA-Public Use
  Company Number: 1000016277

PATIENT
  Age: 46 Year
  Sex: Female
  Weight: 115.6 kg

DRUGS (18)
  1. SAVELLA [Suspect]
     Indication: FIBROMYALGIA
     Dosage: SEE IMAGE
     Route: 048
     Dates: start: 20100601, end: 20100601
  2. SAVELLA [Suspect]
     Indication: FIBROMYALGIA
     Dosage: SEE IMAGE
     Route: 048
     Dates: start: 20100601, end: 20100601
  3. SAVELLA [Suspect]
     Indication: FIBROMYALGIA
     Dosage: SEE IMAGE
     Route: 048
     Dates: start: 20100601, end: 20100601
  4. SAVELLA [Suspect]
     Indication: FIBROMYALGIA
     Dosage: SEE IMAGE
     Route: 048
     Dates: start: 20100701, end: 20100801
  5. SAVELLA [Suspect]
     Indication: FIBROMYALGIA
     Dosage: 400 MG (200 MG,2 IN 1 D),ORAL
     Route: 048
     Dates: start: 20100801, end: 20100914
  6. MAXAIR [Suspect]
     Indication: ASTHMA
     Dosage: (2 IN 1 D)
  7. ADVAIR (FLUTICASONE PROPIONATE) (INHALANT) [Suspect]
     Indication: ASTHMA
     Dosage: 2 PUFFS BID (2 I N 1 D)
  8. PULMICORT [Suspect]
     Indication: ASTHMA
     Dosage: 360 MCG (180 MCG,2 IN 1 D)
  9. ZYFLO CR [Suspect]
     Indication: ASTHMA
     Dosage: 2400 MG (1200 MG,2 IN 1 D),ORAL
     Route: 048
  10. THEOPHYLLINE [Suspect]
     Indication: ASTHMA
     Dosage: 200 MG (200 MG,QAM),ORAL ; 400 MG (400 MG,QHS),ORAL
     Route: 048
  11. XYZAL (LEVOCETIRIZINE HYDROCHLORIDE) (5 MILLIGRAM, TABLETS) (LEVOCETIR [Concomitant]
  12. RELPAX (ELETRIPTAN HYDROBROMIDE) (40 MILLIGRAM) (ELETRIPTAN HYDROBROMI [Concomitant]
  13. RHINOCORT AQUA (BUDESONIDE) (32 MICROGRAM, NASAL DROPS  (INCLUDING NAS [Concomitant]
  14. TOPAMAX (TOPIRAMATE) (TOPIRAMATE) [Concomitant]
  15. B12 (CYANOCOBALAMIN-TANNIN COMPLEX) (INJECTION) (CYANOCOBALAMIN-TANNIN [Concomitant]
  16. PERCOCET (OXYCODONE, ACETAMINOPHEN) (OXYCODONE, ACETAMINOPHEN) [Concomitant]
  17. MULTIVITAMINS (MULTIVITAMINS) (MULTIVITAMINS) [Concomitant]
  18. CALCIUM/VITAMIN D(CALCIUM, VITAMIN D) (CALCIUM, VITAMIN D) [Concomitant]

REACTIONS (5)
  - BLOOD PRESSURE INCREASED [None]
  - CATARACT [None]
  - CONDITION AGGRAVATED [None]
  - OVERDOSE [None]
  - SINUSITIS [None]
